FAERS Safety Report 16539262 (Version 1)
Quarter: 2019Q3

REPORT INFORMATION
  Report Type: Spontaneous
  Country: US (occurrence: US)
  Receive Date: 20190524
  Receipt Date: 20190524
  Transmission Date: 20191004
  Serious: Yes (Hospitalization)
  Sender: FDA-Public Use
  Company Number: None

PATIENT
  Age: 60 Year
  Sex: Male
  Weight: 89.81 kg

DRUGS (1)
  1. ACETAMINOPHEN/HYDROCODONE [Suspect]
     Active Substance: ACETAMINOPHEN\HYDROCODONE
     Indication: PROCEDURAL PAIN
     Dosage: ?          OTHER DOSE:5/325 MG;?
     Route: 048
     Dates: start: 20161005

REACTIONS (4)
  - Knee arthroplasty [None]
  - Constipation [None]
  - Acute kidney injury [None]
  - Renal failure [None]

NARRATIVE: CASE EVENT DATE: 20181104
